FAERS Safety Report 8822081 (Version 1)
Quarter: 2012Q4

REPORT INFORMATION
  Report Type: 
  Country: US (occurrence: US)
  Receive Date: 20121003
  Receipt Date: 20121003
  Transmission Date: 20130627
  Serious: Yes (Other)
  Sender: FDA-Public Use
  Company Number: US-AMGEN-USASP2012060359

PATIENT
  Age: 74 Year
  Sex: Male
  Weight: 106.58 kg

DRUGS (15)
  1. PROCRIT [Suspect]
     Indication: RENAL FAILURE CHRONIC
     Dosage: 20000 unit, UNK
     Route: 058
     Dates: start: 20120904
  2. ACTOS [Concomitant]
     Dosage: 30 mg, qd
  3. LIPITOR [Concomitant]
     Dosage: 80 mg, UNK
  4. LANTUS [Concomitant]
     Dosage: 35 units QD
  5. BABY ASPIRIN [Concomitant]
     Dosage: UNK UNK, qd
  6. TOPROL [Concomitant]
     Dosage: 50 mg, bid
  7. QUINAPRIL [Concomitant]
     Dosage: 20 mg, qd
  8. DEMADEX                            /01036501/ [Concomitant]
     Dosage: 40 mg, qd
  9. HUMALOG [Concomitant]
     Dosage: 10 unit, at supper
  10. HUMULIN [Concomitant]
     Dosage: 30 unit at bed time
  11. LOVAZA [Concomitant]
     Dosage: 1 g, bid
  12. VIT D3 [Concomitant]
     Dosage: 5000 unit, qd
  13. CARDURA [Concomitant]
     Dosage: 2 mg at bed time
  14. IRON [Concomitant]
     Dosage: UNK, once a day
  15. ZEMPLAR [Concomitant]
     Dosage: 1 mug, every monday, wednesday, friday

REACTIONS (2)
  - Abasia [Not Recovered/Not Resolved]
  - Arthralgia [Not Recovered/Not Resolved]
